FAERS Safety Report 10434801 (Version 1)
Quarter: 2014Q3

REPORT INFORMATION
  Report Type: Report from Study
  Country: TH (occurrence: TH)
  Receive Date: 20140906
  Receipt Date: 20140906
  Transmission Date: 20150326
  Serious: Yes (Other)
  Sender: FDA-Public Use
  Company Number: TH-ABBVIE-14P-155-1280107-00

PATIENT
  Age: 33 Year
  Sex: Female

DRUGS (4)
  1. KALETRA [Suspect]
     Active Substance: LOPINAVIR\RITONAVIR
     Indication: ANTIRETROVIRAL THERAPY
     Dosage: NOT TAKING AT CONCEPTION (COURSE 1)
     Route: 048
     Dates: start: 20131225
  2. TRUVADA [Suspect]
     Active Substance: EMTRICITABINE\TENOFOVIR DISOPROXIL FUMARATE
     Indication: ANTIRETROVIRAL THERAPY
     Dosage: TAKING AT CONCEPTION (COURSE 1)
     Route: 048
     Dates: start: 20081229, end: 20131224
  3. EDURANT [Suspect]
     Active Substance: RILPIVIRINE HYDROCHLORIDE
     Indication: ANTIRETROVIRAL THERAPY
     Dosage: TAKING AT CONCEPTION (COURSE 1)
     Route: 048
     Dates: start: 20081229, end: 20131224
  4. TRUVADA [Suspect]
     Active Substance: EMTRICITABINE\TENOFOVIR DISOPROXIL FUMARATE
     Dosage: (COURSE 2)
     Route: 048
     Dates: start: 20131225

REACTIONS (1)
  - Abortion spontaneous [Unknown]

NARRATIVE: CASE EVENT DATE: 20140128
